FAERS Safety Report 9466198 (Version 1)
Quarter: 2013Q3

REPORT INFORMATION
  Report Type: Spontaneous
  Country: GB (occurrence: GB)
  Receive Date: 20130820
  Receipt Date: 20130820
  Transmission Date: 20140515
  Serious: Yes (Hospitalization)
  Sender: FDA-Public Use
  Company Number: GB-ACTAVIS-2013-14616

PATIENT
  Age: 27 Year
  Sex: Female

DRUGS (6)
  1. PARACETAMOL (UNKNOWN) [Suspect]
     Indication: PRODUCT USED FOR UNKNOWN INDICATION
     Dosage: 1 G, QID
     Route: 054
     Dates: start: 20130524
  2. PARACETAMOL (UNKNOWN) [Suspect]
     Dosage: 1 G, TID
     Route: 054
     Dates: start: 20130531, end: 20130603
  3. DOMPERIDONE [Concomitant]
     Indication: PRODUCT USED FOR UNKNOWN INDICATION
     Dosage: 20 MG, UNK
     Route: 065
     Dates: start: 20130320
  4. PROCHLORPERAZINE                   /00013302/ [Concomitant]
     Indication: PRODUCT USED FOR UNKNOWN INDICATION
     Dosage: 6 MG, PRN
     Route: 065
     Dates: start: 20130530
  5. AZITHROMYCIN [Concomitant]
     Indication: PRODUCT USED FOR UNKNOWN INDICATION
     Dosage: 400 MG, FOR 4 DAYS
     Route: 065
     Dates: start: 20130530, end: 20130602
  6. LANSOPRAZOLE ACTAVIS [Concomitant]
     Indication: PRODUCT USED FOR UNKNOWN INDICATION
     Dosage: 30 MG, UNK
     Route: 065

REACTIONS (3)
  - Sepsis [Unknown]
  - Liver injury [Unknown]
  - Analgesic drug level increased [Unknown]
